FAERS Safety Report 8499794 (Version 2)
Quarter: 2012Q4

REPORT INFORMATION
  Report Type: Report from Study
  Country: JP (occurrence: JP)
  Receive Date: 20120409
  Receipt Date: 20121105
  Transmission Date: 20130627
  Serious: No
  Sender: FDA-Public Use
  Company Number: JP-ROCHE-1056545

PATIENT
  Age: 71 Year
  Sex: Male

DRUGS (9)
  1. RANIBIZUMAB [Suspect]
     Indication: AGE-RELATED MACULAR DEGENERATION
     Route: 050
     Dates: start: 20100126
  2. RANIBIZUMAB [Suspect]
     Route: 050
     Dates: start: 20110218
  3. RANIBIZUMAB [Suspect]
     Route: 050
     Dates: start: 20110614
  4. VISUDYNE [Concomitant]
     Indication: AGE-RELATED MACULAR DEGENERATION
     Route: 065
     Dates: start: 200610, end: 20100129
  5. GATIFLO [Concomitant]
     Route: 065
     Dates: start: 201001, end: 201001
  6. LIPITOR [Concomitant]
     Route: 065
  7. AMLODIN [Concomitant]
  8. TIMOPTOL [Concomitant]
  9. XALATAN [Concomitant]

REACTIONS (1)
  - Retinal haemorrhage [Unknown]
